FAERS Safety Report 7600160-5 (Version None)
Quarter: 2011Q3

REPORT INFORMATION
  Report Type: 
  Country: None (occurrence: None)
  Receive Date: 20110711
  Receipt Date: 20110628
  Transmission Date: 20111222
  Serious: Yes (Hospitalization)
  Sender: FDA-Public Use
  Company Number: PHHY2011JP46748

PATIENT
  Age: 15 Year
  Sex: Female

DRUGS (2)
  1. TEGRETOL [Suspect]
     Indication: AFFECT LABILITY
     Dosage: 100 MG, UNK
     Route: 048
     Dates: end: 20110623
  2. PSYCHIATRIC THERAPY [Concomitant]
     Dosage: UNK

REACTIONS (1)
  - GOITRE [None]
